FAERS Safety Report 4944731-3 (Version None)
Quarter: 2006Q1

REPORT INFORMATION
  Report Type: 
  Country: None (occurrence: None)
  Receive Date: 20060113
  Receipt Date: 20050308
  Transmission Date: 20060701
  Serious: Yes (Other)
  Sender: FDA-Public Use
  Company Number: HQWYE590926AUG04

PATIENT
  Age: 52 Year
  Sex: Female
  Weight: 122.58 kg

DRUGS (11)
  1. PREMPRO [Suspect]
     Indication: HORMONE REPLACEMENT THERAPY
     Dosage: ORAL
     Route: 048
     Dates: start: 19970101
  2. PREMPRO [Suspect]
     Indication: MENOPAUSE
     Dosage: ORAL
     Route: 048
     Dates: start: 19970101
  3. LOTENSIN [Concomitant]
  4. SINGULAIR [Concomitant]
  5. CLARITIN-D [Concomitant]
  6. SEREVENT [Concomitant]
  7. FLOVENT [Concomitant]
  8. PROVENTIL (SALBUTAMOL SULFATE) [Concomitant]
  9. VANCENASE [Concomitant]
  10. HYDROCHLOROTHIAZIDE [Concomitant]
  11. PREDNISONE TAB [Concomitant]

REACTIONS (2)
  - PULMONARY EMBOLISM [None]
  - THROMBOSIS [None]
